FAERS Safety Report 24294239 (Version 1)
Quarter: 2024Q3

REPORT INFORMATION
  Report Type: Spontaneous
  Country: US (occurrence: US)
  Receive Date: 20240906
  Receipt Date: 20240906
  Transmission Date: 20241017
  Serious: No
  Sender: DOMPE FARMACEUTICI
  Company Number: US-FARMAPROD-202406-2209

PATIENT
  Sex: Male

DRUGS (24)
  1. OXERVATE [Suspect]
     Active Substance: CENEGERMIN-BKBJ
     Indication: Ulcerative keratitis
     Route: 047
     Dates: start: 20240603
  2. TIOTROPIUM BROMIDE [Concomitant]
     Active Substance: TIOTROPIUM BROMIDE
     Dosage: CAPSULE WITH DEVICE
  3. TAMSULOSIN HYDROCHLORIDE [Concomitant]
     Active Substance: TAMSULOSIN HYDROCHLORIDE
  4. SENNA-S [Concomitant]
     Active Substance: DOCUSATE SODIUM\SENNOSIDES
     Dosage: 8.6MG-50MG
  5. ROPINIROLE HYDROCHLORIDE [Concomitant]
     Active Substance: ROPINIROLE HYDROCHLORIDE
  6. PREDNISONE ACETATE [Concomitant]
     Active Substance: PREDNISONE ACETATE
  7. PANTOPRAZOLE SODIUM [Concomitant]
     Active Substance: PANTOPRAZOLE SODIUM
  8. OXYCODONE HYDROCHLORIDE [Concomitant]
     Active Substance: OXYCODONE HYDROCHLORIDE
  9. MELATONIN [Concomitant]
     Active Substance: MELATONIN
  10. LISINOPRIL CINFA [LISINOPRIL DIHYDRATE] [Concomitant]
  11. LEVETIRACETAM VITORIA [Concomitant]
  12. GABAPENTIN [Concomitant]
     Active Substance: GABAPENTIN
  13. ADVAIR DISKUS [Concomitant]
     Active Substance: FLUTICASONE PROPIONATE\SALMETEROL XINAFOATE
     Dosage: 250-50 MCG BLISTER WITH DEVICE
  14. FINASTERIDE [Concomitant]
     Active Substance: FINASTERIDE
  15. MOXIFLOXACIN [Concomitant]
     Active Substance: MOXIFLOXACIN
  16. ERYTHROMYCIN NS [Concomitant]
  17. DULOXETINE HYDROCHLORIDE [Concomitant]
     Active Substance: DULOXETINE HYDROCHLORIDE
  18. DONEPEZIL HYDROCHLORIDE [Concomitant]
     Active Substance: DONEPEZIL HYDROCHLORIDE
  19. CARVEDILOL [Concomitant]
     Active Substance: CARVEDILOL
  20. CALCIUM CARBONATE [Concomitant]
     Active Substance: CALCIUM CARBONATE
     Dosage: 500 (1250)
  21. BENZONATATE [Concomitant]
     Active Substance: BENZONATATE
  22. ALBUTEROL SULFATE [Concomitant]
     Active Substance: ALBUTEROL SULFATE
  23. FENTANYL [Concomitant]
     Active Substance: FENTANYL\FENTANYL CITRATE
  24. OCULAR LUBRICANT [Concomitant]

REACTIONS (6)
  - Eye pain [Not Recovered/Not Resolved]
  - Eye irritation [Not Recovered/Not Resolved]
  - Lacrimation increased [Not Recovered/Not Resolved]
  - Underdose [Unknown]
  - Foreign body sensation in eyes [Unknown]
  - Wrong technique in product usage process [Unknown]
